FAERS Safety Report 8098336-9 (Version None)
Quarter: 2012Q1

REPORT INFORMATION
  Report Type: 
  Country: None (occurrence: None)
  Receive Date: 20120131
  Receipt Date: 20120119
  Transmission Date: 20120608
  Serious: Yes (Other)
  Sender: FDA-Public Use
  Company Number: CH-ALEXION-A201200100

PATIENT
  Sex: Female

DRUGS (7)
  1. SOLIRIS [Suspect]
     Dosage: 900 MG, UNK
     Route: 042
     Dates: start: 20120119
  2. IRBESARTAN [Concomitant]
     Indication: PROTEINURIA
     Dosage: 600 MG, UNK
     Route: 048
  3. SOLIRIS [Suspect]
     Indication: OFF LABEL USE
     Dosage: 900 MG, UNK
     Route: 042
     Dates: start: 20120111
  4. RAMIPRIL [Concomitant]
     Indication: PROTEINURIA
     Dosage: 7.5 MG, UNK
     Route: 048
  5. PRAVASTATIN [Concomitant]
     Indication: HYPERCHOLESTEROLAEMIA
     Dosage: 20 MG, UNK
     Route: 048
  6. SOLIRIS [Suspect]
     Indication: GLOMERULONEPHRITIS MEMBRANOPROLIFERATIVE
     Dosage: 600 MG, UNK
     Route: 042
     Dates: start: 20120104
  7. TORSEMIDE [Concomitant]
     Indication: NEPHROTIC SYNDROME
     Dosage: 10 MG, UNK
     Route: 048

REACTIONS (2)
  - INFUSION RELATED REACTION [None]
  - MONOPLEGIA [None]
